FAERS Safety Report 4397327-9 (Version None)
Quarter: 2004Q3

REPORT INFORMATION
  Report Type: 
  Country: None (occurrence: None)
  Receive Date: 20040714
  Receipt Date: 20040616
  Transmission Date: 20050211
  Serious: Yes (Other)
  Sender: FDA-Public Use
  Company Number: JP-GLAXOSMITHKLINE-B0335963A

PATIENT
  Age: 7 Month
  Sex: Female
  Weight: 8.7 kg

DRUGS (1)
  1. ZOVIRAX [Suspect]
     Indication: VARICELLA
     Dosage: 175MG FOUR TIMES PER DAY
     Route: 048
     Dates: start: 20040611, end: 20040615

REACTIONS (7)
  - CONVULSION [None]
  - DEPRESSED LEVEL OF CONSCIOUSNESS [None]
  - HYPOTHERMIA [None]
  - MUSCLE RIGIDITY [None]
  - MUSCULOSKELETAL STIFFNESS [None]
  - STARING [None]
  - TREMOR [None]
